FAERS Safety Report 9412569 (Version 2)
Quarter: 2013Q3

REPORT INFORMATION
  Report Type: Spontaneous
  Country: FR (occurrence: FR)
  Receive Date: 20130722
  Receipt Date: 20130730
  Transmission Date: 20140515
  Serious: Yes (Other)
  Sender: FDA-Public Use
  Company Number: FR-ELI_LILLY_AND_COMPANY-FR201307004132

PATIENT
  Sex: Male

DRUGS (2)
  1. ZYPREXA [Suspect]
     Dosage: 60 MG, QD
     Route: 048
     Dates: start: 20050710, end: 20060201
  2. THERALENE [Suspect]
     Dosage: 20 DROPS, QD
     Route: 048
     Dates: start: 20050725, end: 20050903

REACTIONS (7)
  - Depersonalisation [Unknown]
  - Panic reaction [Unknown]
  - Anxiety [Unknown]
  - Dizziness [Unknown]
  - Pain in extremity [Unknown]
  - Dysstasia [Unknown]
  - Feeling abnormal [Unknown]
